FAERS Safety Report 17757476 (Version 1)
Quarter: 2020Q2

REPORT INFORMATION
  Report Type: Spontaneous
  Country: PT (occurrence: PT)
  Receive Date: 20200507
  Receipt Date: 20200507
  Transmission Date: 20200714
  Serious: Yes (Hospitalization, Other)
  Sender: FDA-Public Use
  Company Number: PT-PFIZER INC-2020182186

PATIENT
  Age: 80 Year
  Sex: Male

DRUGS (3)
  1. IPRATROPIUM BROMIDE. [Suspect]
     Active Substance: IPRATROPIUM BROMIDE
     Indication: TACHYPNOEA
  2. HYDROCORTISONE SODIUM SUCCINATE [Suspect]
     Active Substance: HYDROCORTISONE SODIUM SUCCINATE
     Indication: TACHYPNOEA
  3. FUROSEMIDE. [Suspect]
     Active Substance: FUROSEMIDE
     Indication: TACHYPNOEA

REACTIONS (6)
  - Dehydration [Unknown]
  - Off label use [Unknown]
  - Condition aggravated [Unknown]
  - Product use in unapproved indication [Unknown]
  - Secretion discharge [Unknown]
  - Diabetic ketoacidosis [Unknown]
